FAERS Safety Report 19674587 (Version 1)
Quarter: 2021Q3

REPORT INFORMATION
  Report Type: Spontaneous
  Country: US (occurrence: US)
  Receive Date: 20210809
  Receipt Date: 20210809
  Transmission Date: 20211014
  Serious: Yes (Other)
  Sender: FDA-Public Use
  Company Number: None

PATIENT
  Age: 48 Year
  Sex: Female

DRUGS (13)
  1. ALBUTEROL. [Concomitant]
     Active Substance: ALBUTEROL
     Dates: start: 20210805
  2. AZITHROMYCIN ANHYDROUS. [Concomitant]
     Active Substance: AZITHROMYCIN ANHYDROUS
     Dates: start: 20210805
  3. CITALOPRAM [Concomitant]
     Active Substance: CITALOPRAM HYDROBROMIDE
     Dates: start: 20200720
  4. PREDNISONE. [Concomitant]
     Active Substance: PREDNISONE
     Dates: start: 20210805
  5. HUMIRA [Suspect]
     Active Substance: ADALIMUMAB
     Indication: ANKYLOSING SPONDYLITIS
     Dosage: ?          OTHER FREQUENCY:EVERY 2 WEEKS;?
     Route: 058
     Dates: start: 20201119
  6. ALPRAZOLAM. [Concomitant]
     Active Substance: ALPRAZOLAM
     Dates: start: 20210518
  7. FLUTICASONE. [Concomitant]
     Active Substance: FLUTICASONE
     Dates: start: 20210410
  8. METHOCARBAM [Concomitant]
     Active Substance: METHOCARBAMOL
     Dates: start: 20210628
  9. NITROFUR MAC [Concomitant]
     Active Substance: NITROFURANTOIN
     Dates: start: 20210419
  10. PANTOPRAZOLE [Concomitant]
     Active Substance: PANTOPRAZOLE
     Dates: start: 20210323
  11. SMZ?TMP [Concomitant]
     Active Substance: SULFAMETHOXAZOLE\TRIMETHOPRIM
     Dates: start: 20210617
  12. BENZONATATE. [Concomitant]
     Active Substance: BENZONATATE
     Dates: start: 20210805
  13. LEVOTHYROXIN [Concomitant]
     Active Substance: LEVOTHYROXINE
     Dates: start: 20210114

REACTIONS (3)
  - Therapy cessation [None]
  - Urinary tract infection [None]
  - Renal failure [None]

NARRATIVE: CASE EVENT DATE: 20210807
